FAERS Safety Report 19726287 (Version 5)
Quarter: 2021Q3

REPORT INFORMATION
  Report Type: Report from Study
  Country: CL (occurrence: CL)
  Receive Date: 20210819
  Receipt Date: 20210924
  Transmission Date: 20211014
  Serious: Yes (Hospitalization)
  Sender: FDA-Public Use
  Company Number: CL-009507513-2107CHL005755

PATIENT
  Age: 49 Year
  Sex: Female
  Weight: 68 kg

DRUGS (19)
  1. BUPRENORPHINE. [Concomitant]
     Active Substance: BUPRENORPHINE
     Dosage: 35 MG, OTHER
     Route: 003
     Dates: start: 20210709
  2. DOMPERIDONE [Concomitant]
     Active Substance: DOMPERIDONE
     Indication: PALLIATIVE CARE
     Dosage: 10 MILLIGRAM, TID
     Route: 048
     Dates: start: 20210422
  3. OMEPRAZOLE. [Concomitant]
     Active Substance: OMEPRAZOLE
     Dosage: 20 MILLIGRAM, BID
     Route: 048
     Dates: start: 20210709
  4. CLONAZEPAM. [Concomitant]
     Active Substance: CLONAZEPAM
     Indication: PALLIATIVE CARE
     Dosage: 0.5 MILLIGRAM, TID
     Route: 048
     Dates: start: 20210422, end: 20210708
  5. VENLAFAXINE HYDROCHLORIDE. [Concomitant]
     Active Substance: VENLAFAXINE HYDROCHLORIDE
     Indication: PALLIATIVE CARE
     Dosage: 75 MILLIGRAM, QD
     Route: 048
     Dates: start: 20210422, end: 20210715
  6. LENVATINIB MESYLATE [Suspect]
     Active Substance: LENVATINIB MESYLATE
     Indication: RENAL CELL CARCINOMA
     Dosage: 20 MILLIGRAM, QD
     Route: 048
     Dates: start: 20210702, end: 20210714
  7. ONDANSETRON [Concomitant]
     Active Substance: ONDANSETRON
     Indication: VOMITING
  8. ACETAMINOPHEN. [Concomitant]
     Active Substance: ACETAMINOPHEN
     Indication: PALLIATIVE CARE
     Dosage: 1 GRAM, TID
     Route: 048
     Dates: start: 20210709
  9. PEMBROLIZUMAB. [Suspect]
     Active Substance: PEMBROLIZUMAB
     Indication: RENAL CELL CARCINOMA
     Dosage: 400 MILLIGRAM, EVERY 6 WEEKS
     Route: 042
     Dates: start: 20210702, end: 20210702
  10. OMEPRAZOLE. [Concomitant]
     Active Substance: OMEPRAZOLE
     Indication: PALLIATIVE CARE
     Dosage: 20 MG, QD
     Route: 048
     Dates: start: 20210422, end: 20210708
  11. LENVATINIB MESYLATE [Suspect]
     Active Substance: LENVATINIB MESYLATE
     Dosage: 20 MILLIGRAM, QD
     Route: 048
     Dates: start: 20210730
  12. BUPRENORPHINE. [Concomitant]
     Active Substance: BUPRENORPHINE
     Indication: PALLIATIVE CARE
     Dosage: 35 MILLIGRAM, QD
     Route: 003
     Dates: start: 20210422, end: 20210708
  13. MORPHINE [Concomitant]
     Active Substance: MORPHINE
     Indication: PALLIATIVE CARE
     Dosage: 3 GTT DROPS, QID
     Route: 048
     Dates: start: 20210422, end: 20210708
  14. POLYETHYLENE GLYCOL 3350. [Concomitant]
     Active Substance: POLYETHYLENE GLYCOL 3350
     Indication: PALLIATIVE CARE
     Dosage: 8.5 GRAM, BID
     Route: 048
     Dates: start: 20210422
  15. MORPHINE [Concomitant]
     Active Substance: MORPHINE
     Dosage: 12 GTT DROPS DAILY, PRN
     Route: 048
     Dates: start: 20210709, end: 20210715
  16. CLONAZEPAM. [Concomitant]
     Active Substance: CLONAZEPAM
     Indication: PALLIATIVE CARE
     Dosage: 1 MILLIGRAM, BID
     Route: 048
     Dates: start: 20210709, end: 20210715
  17. BELZUTIFAN. [Suspect]
     Active Substance: BELZUTIFAN
     Indication: RENAL CELL CARCINOMA
     Dosage: 120 MILLIGRAM, QD
     Route: 048
     Dates: start: 20210702, end: 20210714
  18. ONDANSETRON [Concomitant]
     Active Substance: ONDANSETRON
     Indication: NAUSEA
     Dosage: 4 MILLIGRAM, BID
     Route: 048
     Dates: start: 20210709, end: 20210715
  19. PEMBROLIZUMAB. [Suspect]
     Active Substance: PEMBROLIZUMAB
     Dosage: 400 MILLIGRAM, EVERY 6 WEEKS
     Route: 042
     Dates: start: 20210813

REACTIONS (1)
  - Hypoxia [Recovered/Resolved]

NARRATIVE: CASE EVENT DATE: 20210715
